APPROVED DRUG PRODUCT: NOXIVENT
Active Ingredient: NITRIC OXIDE
Strength: 800PPM
Dosage Form/Route: GAS;INHALATION
Application: A207141 | Product #002 | TE Code: AA
Applicant: LINDE GAS AND EQUIPMENT INC
Approved: Oct 2, 2018 | RLD: No | RS: No | Type: RX